FAERS Safety Report 18729635 (Version 1)
Quarter: 2021Q1

REPORT INFORMATION
  Report Type: Spontaneous
  Country: US (occurrence: US)
  Receive Date: 20210112
  Receipt Date: 20210112
  Transmission Date: 20210419
  Serious: Yes (Hospitalization)
  Sender: FDA-Public Use
  Company Number: None

PATIENT
  Age: 90 Year
  Sex: Male
  Weight: 77.1 kg

DRUGS (1)
  1. BAMLANIVIMAB. [Suspect]
     Active Substance: BAMLANIVIMAB
     Indication: COVID-19
     Dosage: ?          OTHER FREQUENCY:ONCE;?
     Route: 042
     Dates: start: 20210104, end: 20210104

REACTIONS (10)
  - Oxygen saturation decreased [None]
  - Interstitial lung disease [None]
  - Cough [None]
  - Decreased appetite [None]
  - Dyspnoea [None]
  - Respiratory rate increased [None]
  - Gastrointestinal haemorrhage [None]
  - Diarrhoea [None]
  - Fatigue [None]
  - Fibrin D dimer increased [None]

NARRATIVE: CASE EVENT DATE: 20210105
